FAERS Safety Report 5029369-4 (Version None)
Quarter: 2006Q2

REPORT INFORMATION
  Report Type: 
  Country: None (occurrence: None)
  Receive Date: 20060614
  Receipt Date: 20060601
  Transmission Date: 20061013
  Serious: Yes (Hospitalization)
  Sender: FDA-Public Use
  Company Number: CLOF-10248

PATIENT
  Age: 70 Year
  Sex: Male

DRUGS (13)
  1. CLOFARABINE [Suspect]
     Indication: ACUTE LYMPHOCYTIC LEUKAEMIA
     Dosage: 40 MG/M2 QD X 3 IV
     Route: 042
     Dates: start: 20060404, end: 20060406
  2. CYCLOPHOSPHAMIDE [Suspect]
     Indication: ACUTE LYMPHOCYTIC LEUKAEMIA
     Dosage: 200 MG/M2 Q12HR IV
     Route: 042
     Dates: start: 20060403, end: 20060406
  3. VALTREX [Concomitant]
  4. PROTONIX [Concomitant]
  5. LEVALBUTEROL HCL [Concomitant]
  6. ATROVENT [Concomitant]
  7. METOPROLOL TARTRATE [Concomitant]
  8. LASIX [Concomitant]
  9. AMOLODIPINE [Concomitant]
  10. ENALAPRIL [Concomitant]
  11. SPIRONOLACTONE [Concomitant]
  12. LEVAQUIN [Concomitant]
  13. VORICONAZOLE [Concomitant]

REACTIONS (2)
  - HYPOTENSION [None]
  - SYNCOPE [None]
